FAERS Safety Report 8397066 (Version 6)
Quarter: 2012Q4

REPORT INFORMATION
  Report Type: 
  Country: FR (occurrence: FR)
  Receive Date: 20120209
  Receipt Date: 20121204
  Transmission Date: 20130627
  Serious: Yes (Hospitalization, Other)
  Sender: FDA-Public Use
  Company Number: FR-UCBSA-050414

PATIENT
  Age: 63 Year
  Sex: Female
  Weight: 58 kg

DRUGS (2)
  1. CIMZIA [Suspect]
     Indication: RHEUMATOID ARTHRITIS
     Route: 058
     Dates: start: 20111113, end: 20120121
  2. METHOTREXATE [Concomitant]
     Indication: RHEUMATOID ARTHRITIS
     Route: 048
     Dates: start: 2008, end: 2012

REACTIONS (4)
  - Lung adenocarcinoma [Recovering/Resolving]
  - Pustular psoriasis [Recovering/Resolving]
  - Pulmonary mass [Unknown]
  - Diarrhoea [Not Recovered/Not Resolved]
